FAERS Safety Report 12979026 (Version 1)
Quarter: 2016Q4

REPORT INFORMATION
  Report Type: Spontaneous
  Country: US (occurrence: US)
  Receive Date: 20161128
  Receipt Date: 20161128
  Transmission Date: 20170207
  Serious: Yes (Hospitalization, Other)
  Sender: FDA-Public Use
  Company Number: US-MYLANLABS-2016M1051078

PATIENT

DRUGS (3)
  1. PREDNISONE. [Suspect]
     Active Substance: PREDNISONE
     Indication: CHRONIC OBSTRUCTIVE PULMONARY DISEASE
     Route: 065
  2. BUDESONIDE W/FORMOTEROL [Suspect]
     Active Substance: BUDESONIDE\FORMOTEROL
     Indication: CHRONIC OBSTRUCTIVE PULMONARY DISEASE
     Route: 065
  3. VANCOMYCIN [Concomitant]
     Active Substance: VANCOMYCIN
     Indication: URINARY TRACT INFECTION
     Route: 042

REACTIONS (2)
  - Toxic encephalopathy [Recovering/Resolving]
  - Adrenal insufficiency [Recovered/Resolved]
